FAERS Safety Report 25903696 (Version 1)
Quarter: 2025Q4

REPORT INFORMATION
  Report Type: Spontaneous
  Country: EU (occurrence: EU)
  Receive Date: 20251010
  Receipt Date: 20251010
  Transmission Date: 20260118
  Serious: Yes (Other)
  Sender: CELLTRION
  Company Number: EU-AMGEN-ESPSP2025191404

PATIENT

DRUGS (6)
  1. ADALIMUMAB [Suspect]
     Active Substance: ADALIMUMAB
     Indication: Psoriasis
     Dosage: UNK (DOSAGE1: UNIT=NOT AVAILABLE)
     Route: 065
  2. ADALIMUMAB [Suspect]
     Active Substance: ADALIMUMAB
  3. CORTICOSTEROID NOS [Concomitant]
     Active Substance: CORTICOSTEROID NOS
  4. ACITRETIN [Concomitant]
     Active Substance: ACITRETIN
  5. METHOTREXATE [Concomitant]
     Active Substance: METHOTREXATE
  6. PSORALEN [Concomitant]
     Active Substance: PSORALEN
     Indication: Product used for unknown indication

REACTIONS (2)
  - Cutaneous T-cell lymphoma [Unknown]
  - Therapy non-responder [Unknown]
